FAERS Safety Report 11636127 (Version 1)
Quarter: 2015Q4

REPORT INFORMATION
  Report Type: Spontaneous
  Country: US (occurrence: US)
  Receive Date: 20151016
  Receipt Date: 20151016
  Transmission Date: 20160304
  Serious: No
  Sender: FDA-Public Use
  Company Number: US-WEST-WARD PHARMACEUTICALS CORP.-US-H14001-15-00730

PATIENT
  Sex: Female

DRUGS (4)
  1. INFUMORPH [Suspect]
     Active Substance: MORPHINE SULFATE
     Route: 037
     Dates: start: 20140717, end: 20140824
  2. INFUMORPH [Suspect]
     Active Substance: MORPHINE SULFATE
     Route: 037
     Dates: start: 20140825, end: 20140904
  3. INFUMORPH [Suspect]
     Active Substance: MORPHINE SULFATE
     Indication: SPINAL PAIN
     Route: 037
     Dates: end: 20140716
  4. BACLOFEN. [Concomitant]
     Active Substance: BACLOFEN
     Indication: SPINAL PAIN
     Route: 037

REACTIONS (2)
  - Drug ineffective [Recovered/Resolved]
  - Nausea [Not Recovered/Not Resolved]

NARRATIVE: CASE EVENT DATE: 20140717
